FAERS Safety Report 16753175 (Version 6)
Quarter: 2019Q4

REPORT INFORMATION
  Report Type: Report from Study
  Country: IL (occurrence: IL)
  Receive Date: 20190829
  Receipt Date: 20191218
  Transmission Date: 20200122
  Serious: Yes (Hospitalization)
  Sender: FDA-Public Use
  Company Number: IL-ROCHE-2382250

PATIENT
  Age: 67 Year
  Sex: Male
  Weight: 77.1 kg

DRUGS (22)
  1. CARBOPLATIN. [Suspect]
     Active Substance: CARBOPLATIN
     Indication: NON-SMALL CELL LUNG CANCER
     Dosage: MOST RECENT DOSE OF CARBOPLATIN OF 550 MG PRIOR TO SAE ONSET ON 25/JUL/2019?AUC OF 6 MG/ML/MIN ADMIN
     Route: 042
     Dates: start: 20190515
  2. STOPIT [Concomitant]
     Indication: DIARRHOEA
     Route: 065
     Dates: start: 20190715, end: 20190715
  3. AEROVENT [IPRATROPIUM BROMIDE] [Concomitant]
     Indication: DYSPNOEA
     Route: 065
     Dates: start: 20190703
  4. NORMAL SALINE [Concomitant]
     Active Substance: SODIUM CHLORIDE
     Indication: DIARRHOEA
     Route: 065
     Dates: start: 20190715, end: 20190716
  5. LIPITOR [Concomitant]
     Active Substance: ATORVASTATIN CALCIUM
     Indication: HYPERLIPIDAEMIA
     Route: 048
     Dates: start: 20190106
  6. MICROPIRIN [Concomitant]
     Active Substance: ASPIRIN
     Indication: CEREBROVASCULAR ACCIDENT
     Route: 048
     Dates: start: 20190106
  7. ALFUZOSIN [Concomitant]
     Active Substance: ALFUZOSIN
     Indication: NEPHROLITHIASIS
     Route: 048
     Dates: start: 20190312
  8. AKYNZEO [Concomitant]
     Active Substance: NETUPITANT\PALONOSETRON HYDROCHLORIDE
     Route: 065
     Dates: start: 20190725, end: 20190725
  9. OPTALGIN [Concomitant]
     Active Substance: METAMIZOLE
     Indication: PAIN
     Route: 065
     Dates: start: 20190715, end: 20190715
  10. ASPIRIN [ACETYLSALICYLIC ACID] [Concomitant]
     Active Substance: ASPIRIN
     Indication: PYREXIA
     Route: 065
     Dates: start: 20190812, end: 20190812
  11. SALINE [SODIUM CHLORIDE] [Concomitant]
     Active Substance: SODIUM CHLORIDE
     Indication: ANAEMIA
     Route: 065
     Dates: start: 20190812, end: 20190812
  12. OPTALGIN [Concomitant]
     Active Substance: METAMIZOLE
     Indication: PYREXIA
     Route: 065
     Dates: start: 20190812, end: 20190812
  13. DEXTROSE 5% [Concomitant]
     Active Substance: DEXTROSE
     Indication: BLOOD CREATININE INCREASED
     Route: 065
     Dates: start: 20190807, end: 20190807
  14. TAZOCIN [Concomitant]
     Active Substance: PIPERACILLIN SODIUM\TAZOBACTAM SODIUM
     Indication: PYREXIA
     Route: 065
     Dates: start: 20190812, end: 20190816
  15. PAPAVERINE [Concomitant]
     Active Substance: PAPAVERINE
     Indication: PAIN
     Route: 065
     Dates: start: 20190715, end: 20190715
  16. NYSTATIN. [Concomitant]
     Active Substance: NYSTATIN
  17. DEXACORT [DEXAMETHASONE] [Concomitant]
     Route: 042
     Dates: start: 20190725, end: 20190725
  18. ZOFRAN [Concomitant]
     Active Substance: ONDANSETRON HYDROCHLORIDE
     Indication: VOMITING
     Route: 065
     Dates: start: 20190711, end: 20190715
  19. ATEZOLIZUMAB. [Suspect]
     Active Substance: ATEZOLIZUMAB
     Indication: NON-SMALL CELL LUNG CANCER
     Dosage: DATE OF MOST RECENT DOSE OF ATEZOLIZUMAB PRIOR TO SAE ONSET: 25/JUL/2019.
     Route: 042
     Dates: start: 20190515
  20. NAB-PACLITAXEL [Suspect]
     Active Substance: PACLITAXEL
     Indication: NON-SMALL CELL LUNG CANCER
     Dosage: MOST RECENT DOSE OF 195 MG PRIOR TO EVENT ONSET ON 31/JUL/2019?100 MG/M2 WILL BE ADMINISTRED INTRAVE
     Route: 042
     Dates: start: 20190515
  21. ESOMEPRAZOLE. [Concomitant]
     Active Substance: ESOMEPRAZOLE MAGNESIUM
     Route: 065
     Dates: start: 20190812, end: 20190815
  22. ESOMEPRAZOLE. [Concomitant]
     Active Substance: ESOMEPRAZOLE MAGNESIUM
     Indication: DYSPEPSIA
     Route: 065
     Dates: start: 20190716

REACTIONS (1)
  - Duodenal ulcer haemorrhage [Recovered/Resolved]

NARRATIVE: CASE EVENT DATE: 20190812
